FAERS Safety Report 9398565 (Version 2)
Quarter: 2013Q3

REPORT INFORMATION
  Report Type: Spontaneous
  Country: BR (occurrence: BR)
  Receive Date: 20130712
  Receipt Date: 20130809
  Transmission Date: 20140515
  Serious: Yes (Hospitalization, Other)
  Sender: FDA-Public Use
  Company Number: BR-ELI_LILLY_AND_COMPANY-BR201307000941

PATIENT
  Age: 62 Year
  Sex: Female
  Weight: 85 kg

DRUGS (15)
  1. HUMULIN N [Suspect]
     Indication: TYPE 2 DIABETES MELLITUS
     Dosage: 40 IU, EACH EVENING
     Route: 058
  2. HUMULIN N [Suspect]
     Dosage: 28 IU, QD
     Route: 058
  3. HUMULIN N [Suspect]
     Dosage: 42 IU, QD
     Route: 058
  4. HUMULIN N [Suspect]
     Dosage: 48 IU, EACH EVENING
     Route: 058
  5. HUMULIN N [Suspect]
     Dosage: 22 IU, EACH MORNING
     Route: 058
  6. HUMULIN R [Suspect]
     Indication: TYPE 2 DIABETES MELLITUS
     Dosage: UNK UNK, PRN
     Route: 058
  7. EFFIENT [Concomitant]
     Dosage: UNK, UNKNOWN
     Route: 065
  8. NOVOLIN NPH [Concomitant]
     Indication: TYPE 2 DIABETES MELLITUS
     Dosage: UNK, UNKNOWN
     Route: 065
  9. SOMALGIN [Concomitant]
     Dosage: UNK, UNKNOWN
     Route: 065
  10. MANIVASC [Concomitant]
     Dosage: UNK, UNKNOWN
     Route: 065
  11. CARVEDILOL [Concomitant]
     Dosage: UNK, UNKNOWN
     Route: 065
  12. ATENSINA [Concomitant]
     Dosage: UNK, UNKNOWN
     Route: 065
  13. LEXOTAN [Concomitant]
     Indication: INSOMNIA
     Dosage: UNK, UNKNOWN
     Route: 065
  14. VITAMIN E                            /001105/ [Concomitant]
     Dosage: UNK, UNKNOWN
     Route: 065
  15. ERITROMAX [Concomitant]
     Dosage: UNK UNK, WEEKLY (1/W)

REACTIONS (12)
  - Renal failure [Recovered/Resolved]
  - Dehydration [Recovered/Resolved]
  - Paralysis [Unknown]
  - Cataract [Unknown]
  - Drug hypersensitivity [Unknown]
  - Injection site induration [Unknown]
  - Viral infection [Unknown]
  - Blood glucose fluctuation [Unknown]
  - Weight decreased [Recovered/Resolved]
  - Vomiting [Recovered/Resolved]
  - Asthenia [Unknown]
  - Injection site bruising [Unknown]
